FAERS Safety Report 25113012 (Version 5)
Quarter: 2025Q4

REPORT INFORMATION
  Report Type: Spontaneous
  Country: US (occurrence: None)
  Receive Date: 20250324
  Receipt Date: 20251217
  Transmission Date: 20260118
  Serious: No
  Sender: UCB
  Company Number: US-UCBSA-2025000562

PATIENT
  Age: 41 Year

DRUGS (1)
  1. BIMZELX [Suspect]
     Active Substance: BIMEKIZUMAB-BKZX
     Indication: Hidradenitis
     Dosage: 320 MILLIGRAM, EV 2 WEEKS(QOW)

REACTIONS (7)
  - Weight decreased [Unknown]
  - Pharyngitis streptococcal [Unknown]
  - Rash [Unknown]
  - Vertigo [Unknown]
  - Product availability issue [Unknown]
  - Product dose omission issue [Unknown]
  - Therapy interrupted [Unknown]
